FAERS Safety Report 25113582 (Version 1)
Quarter: 2025Q1

REPORT INFORMATION
  Report Type: Report from Study
  Country: FR (occurrence: FR)
  Receive Date: 20250324
  Receipt Date: 20250324
  Transmission Date: 20250409
  Serious: Yes (Other)
  Sender: ALEXION PHARMACEUTICALS
  Company Number: FR-ASTRAZENECA-202503GLO015433FR

PATIENT
  Age: 13 Year

DRUGS (2)
  1. SELUMETINIB [Suspect]
     Active Substance: SELUMETINIB
     Dosage: 45 MILLIGRAM, BID
     Route: 065
  2. ACETAMINOPHEN [Concomitant]
     Active Substance: ACETAMINOPHEN
     Indication: Chest pain

REACTIONS (1)
  - Neutropenia [Recovered/Resolved]
